FAERS Safety Report 10416452 (Version 2)
Quarter: 2014Q3

REPORT INFORMATION
  Report Type: Spontaneous
  Country: US (occurrence: US)
  Receive Date: 20140828
  Receipt Date: 20140828
  Transmission Date: 20150326
  Serious: Yes (Death, Hospitalization)
  Sender: FDA-Public Use
  Company Number: US-GLAXOSMITHKLINE-A0840818A

PATIENT
  Sex: Female

DRUGS (2)
  1. AVANDIA [Suspect]
     Active Substance: ROSIGLITAZONE MALEATE
     Indication: TYPE 2 DIABETES MELLITUS
     Dosage: 4MG PER DAY
     Route: 048
     Dates: start: 20030318, end: 20070725
  2. AVANDAMET [Suspect]
     Active Substance: METFORMIN HYDROCHLORIDE\ROSIGLITAZONE MALEATE
     Indication: TYPE 2 DIABETES MELLITUS
     Route: 048
     Dates: start: 20070112, end: 20081003

REACTIONS (16)
  - Cerebrovascular accident [Unknown]
  - Transient ischaemic attack [Unknown]
  - Atrioventricular block first degree [Unknown]
  - Pleural effusion [Unknown]
  - Cerebral arteriosclerosis [Unknown]
  - Cardiac failure congestive [Unknown]
  - Heart injury [Unknown]
  - Pneumonia [Fatal]
  - Dementia Alzheimer^s type [Unknown]
  - Atrial fibrillation [Unknown]
  - Cerebral ischaemia [Unknown]
  - Paraesthesia [Unknown]
  - Respiratory failure [Fatal]
  - Sinus tachycardia [Unknown]
  - Chronic obstructive pulmonary disease [Unknown]
  - Syncope [Unknown]
